FAERS Safety Report 10154324 (Version 1)
Quarter: 2014Q2

REPORT INFORMATION
  Report Type: Spontaneous
  Country: US (occurrence: US)
  Receive Date: 20140506
  Receipt Date: 20140506
  Transmission Date: 20141212
  Serious: No
  Sender: FDA-Public Use
  Company Number: US-PFIZER INC-2014123797

PATIENT
  Sex: Female

DRUGS (3)
  1. CHANTIX [Suspect]
     Dosage: 0.5 MG, UNK
     Dates: start: 20140422, end: 2014
  2. CHANTIX [Suspect]
     Dosage: 1 MG, UNK
     Dates: start: 2014
  3. CHANTIX [Suspect]
     Dosage: UNK

REACTIONS (3)
  - Malaise [Unknown]
  - Nausea [Unknown]
  - Nausea [Unknown]
